FAERS Safety Report 17604788 (Version 1)
Quarter: 2020Q1

REPORT INFORMATION
  Report Type: Spontaneous
  Country: US (occurrence: US)
  Receive Date: 20200331
  Receipt Date: 20200331
  Transmission Date: 20200409
  Serious: No
  Sender: FDA-Public Use
  Company Number: US-BIOGEN-2019BI00695118

PATIENT
  Sex: Female

DRUGS (2)
  1. TECFIDERA [Suspect]
     Active Substance: DIMETHYL FUMARATE
     Route: 065
     Dates: start: 20141126, end: 20191101
  2. TECFIDERA [Suspect]
     Active Substance: DIMETHYL FUMARATE
     Indication: MULTIPLE SCLEROSIS
     Route: 065
     Dates: start: 20160907

REACTIONS (10)
  - Stress [Unknown]
  - Inappropriate schedule of product administration [Unknown]
  - Decreased appetite [Unknown]
  - Gait disturbance [Unknown]
  - Flushing [Not Recovered/Not Resolved]
  - Feeling abnormal [Unknown]
  - Confusional state [Unknown]
  - Poor quality sleep [Unknown]
  - Pruritus [Not Recovered/Not Resolved]
  - Hot flush [Not Recovered/Not Resolved]

NARRATIVE: CASE EVENT DATE: 2016
